FAERS Safety Report 9504878 (Version 2)
Quarter: 2013Q3

REPORT INFORMATION
  Report Type: Report from Study
  Country: US (occurrence: US)
  Receive Date: 20130906
  Receipt Date: 20130916
  Transmission Date: 20140515
  Serious: Yes (Hospitalization)
  Sender: FDA-Public Use
  Company Number: US-ROCHE-1221591

PATIENT
  Age: 52 Year
  Sex: Female
  Weight: 73.09 kg

DRUGS (18)
  1. HERCEPTIN [Suspect]
     Indication: BREAST CANCER
     Dosage: FOR 6 CYCLES
     Route: 065
     Dates: start: 200909, end: 200909
  2. HERCEPTIN [Suspect]
     Dosage: EVERY 3 WEEKS FOR 12 TREATMENTS
     Route: 065
     Dates: start: 200911, end: 201010
  3. HERCEPTIN [Suspect]
     Dosage: OVER 90 MINUTES IN 250 CC NS
     Route: 042
     Dates: start: 20110815, end: 20130206
  4. TYKERB [Concomitant]
     Route: 065
     Dates: start: 20110815, end: 20130206
  5. TRAZODONE HCL [Concomitant]
     Dosage: AT BEDTIME
     Route: 048
  6. LOMOTIL (UNITED STATES) [Concomitant]
     Dosage: 2.5-0.0.25 MG TABLET FOUR TIMES A DAY AS NEEDED
     Route: 048
  7. NEXIUM [Concomitant]
     Route: 048
  8. SARGRAMOSTIM [Concomitant]
     Dosage: DAILY FOR 10 DAYS
     Route: 065
  9. ASPIRIN [Concomitant]
     Route: 048
  10. LIPITOR [Concomitant]
     Route: 048
  11. COREG [Concomitant]
     Route: 048
  12. ALTACE [Concomitant]
     Route: 048
  13. XELODA [Concomitant]
     Route: 065
     Dates: start: 201102, end: 201106
  14. ADRIAMYCIN [Concomitant]
     Route: 065
     Dates: end: 20101027
  15. CYTOXAN [Concomitant]
  16. ACETAMINOPHEN [Concomitant]
     Route: 048
  17. SODIUM CHLORIDE [Concomitant]
     Route: 042
  18. RADIATION [Concomitant]

REACTIONS (6)
  - Pneumothorax [Unknown]
  - Cardiotoxicity [Unknown]
  - Inflammatory carcinoma of the breast [Not Recovered/Not Resolved]
  - Ejection fraction decreased [Unknown]
  - Coronary artery disease [Not Recovered/Not Resolved]
  - Lung adenocarcinoma [Not Recovered/Not Resolved]
